FAERS Safety Report 7219676-9 (Version None)
Quarter: 2011Q1

REPORT INFORMATION
  Report Type: 
  Country: None (occurrence: None)
  Receive Date: 20110111
  Receipt Date: 20101230
  Transmission Date: 20110831
  Serious: Yes (Hospitalization)
  Sender: FDA-Public Use
  Company Number: PHHO2010JP19714

PATIENT
  Sex: Male

DRUGS (20)
  1. NEORAL [Suspect]
     Dosage: 125 MG
     Route: 048
     Dates: start: 20101116
  2. MEDROL [Suspect]
     Dosage: 8 MG
     Route: 048
     Dates: start: 20101207
  3. NEORAL [Suspect]
     Indication: RENAL TRANSPLANT
     Dosage: 100 MG
     Route: 048
     Dates: start: 20090517
  4. MEDROL [Suspect]
     Indication: RENAL TRANSPLANT
     Dosage: 4 MG
     Route: 048
     Dates: start: 20090522, end: 20101013
  5. LIPITOR [Concomitant]
     Indication: HYPERLIPIDAEMIA
  6. NITROGEN LIQUID [Concomitant]
     Indication: SKIN PAPILLOMA
  7. DIOVAN [Concomitant]
     Indication: HYPERTENSION
  8. ISODINE [Concomitant]
  9. KERATINAMIN [Concomitant]
     Indication: HYPERKERATOSIS PALMARIS AND PLANTARIS
  10. CERTICAN [Suspect]
     Dosage: 1.5 MG
     Route: 048
     Dates: start: 20100407
  11. BASEN [Concomitant]
     Indication: GLUCOSE TOLERANCE IMPAIRED
  12. DALACIN T [Concomitant]
     Indication: ACNE
  13. CERTICAN [Suspect]
     Indication: RENAL TRANSPLANT
     Dosage: 0.75 MG
     Route: 048
     Dates: start: 20090514
  14. TAGAMET [Concomitant]
  15. ALOSENN [Concomitant]
     Indication: CONSTIPATION
  16. SANDIMMUNE [Suspect]
     Indication: RENAL TRANSPLANT
     Dosage: 20 MG
     Route: 042
     Dates: start: 20090513, end: 20090501
  17. PRIDOL [Concomitant]
     Indication: RENAL TRANSPLANT
  18. ASPIRIN [Concomitant]
  19. MAGNESIUM OXIDE [Concomitant]
     Indication: CONSTIPATION
  20. DIFFERIN [Concomitant]
     Indication: SKIN PAPILLOMA

REACTIONS (2)
  - PYREXIA [None]
  - INTERSTITIAL LUNG DISEASE [None]
